FAERS Safety Report 8303010-7 (Version None)
Quarter: 2012Q2

REPORT INFORMATION
  Report Type: 
  Country: None (occurrence: None)
  Receive Date: 20120421
  Receipt Date: 20120105
  Transmission Date: 20120825
  Serious: Yes (Hospitalization, Disabling, Other)
  Sender: FDA-Public Use
  Company Number: PHHY2012US023172

PATIENT
  Sex: Male
  Weight: 143 kg

DRUGS (23)
  1. MYFORTIC [Suspect]
     Dosage: 180 MG, BID
     Route: 048
     Dates: start: 20100210, end: 20111118
  2. CIPROFLOXACIN [Concomitant]
     Dosage: 1 DF
     Route: 048
  3. ASPIRIN [Concomitant]
     Dosage: 81 MG, QD
     Route: 048
  4. VITAMIN D [Concomitant]
     Dosage: 2000 U, QD
     Route: 048
  5. ZOLOFT [Concomitant]
     Dosage: 1 DF, QD
  6. PROGRAF [Concomitant]
     Dosage: 2 MG, BID
     Route: 048
  7. NOVOLOG [Concomitant]
  8. PHOSLO [Concomitant]
     Dosage: 1 DF, TID
     Route: 048
  9. MYFORTIC [Suspect]
     Indication: IMMUNOSUPPRESSION
     Dosage: 1080 MG, DAILY
     Route: 048
     Dates: start: 20071205, end: 20071217
  10. IMURAN [Concomitant]
     Dates: start: 20100302
  11. COREG [Concomitant]
     Dosage: 1 DF, BID
  12. PROCRIT [Concomitant]
     Dosage: 6000 U, TIW
     Route: 058
  13. PEPCID [Concomitant]
     Dosage: 20 MG, QD
     Route: 048
  14. CARDIZEM [Concomitant]
     Dosage: 360 MG, QD
     Route: 048
  15. MULTI-VITAMINS [Concomitant]
     Dosage: 1 DF, QD
  16. TACROLIMUS [Concomitant]
     Dosage: 5 MG
     Dates: start: 20070512, end: 20080301
  17. LASIX [Concomitant]
     Dosage: 1 DF, BID
  18. COZAAR [Concomitant]
     Dosage: 1 DF, QD
  19. PRILOSEC [Concomitant]
     Dosage: 1 DF, QD
  20. STRESSTABS [Concomitant]
     Dosage: 1 DF, QD
     Route: 048
  21. PREDNISONE TAB [Concomitant]
     Dosage: 5 MG
     Dates: start: 20100201
  22. ADVICOR [Concomitant]
     Route: 048
  23. HUMULIN N [Concomitant]
     Dosage: 50 U, AT BADTIME
     Route: 058

REACTIONS (14)
  - ABDOMINAL PAIN LOWER [None]
  - PSEUDOMONAS INFECTION [None]
  - LYMPHOCYTE COUNT DECREASED [None]
  - WOUND [None]
  - WEIGHT INCREASED [None]
  - ORTHOSTATIC HYPOTENSION [None]
  - OEDEMA PERIPHERAL [None]
  - SERUM FERRITIN INCREASED [None]
  - DYSSTASIA [None]
  - WOUND INFECTION PSEUDOMONAS [None]
  - UPPER RESPIRATORY TRACT INFECTION [None]
  - CARDIAC FAILURE CONGESTIVE [None]
  - SEROMA [None]
  - HERPES ZOSTER [None]
